FAERS Safety Report 9323907 (Version 2)
Quarter: 2013Q4

REPORT INFORMATION
  Report Type: Spontaneous
  Country: US (occurrence: US)
  Receive Date: 20130603
  Receipt Date: 20131011
  Transmission Date: 20140711
  Serious: Yes (Disabling)
  Sender: FDA-Public Use
  Company Number: US-PFIZER INC-2013167033

PATIENT
  Age: 56 Year
  Sex: Female
  Weight: 86.17 kg

DRUGS (4)
  1. LYRICA [Suspect]
     Indication: PAIN IN EXTREMITY
     Dosage: 150 MG DAILY
  2. LYRICA [Suspect]
     Indication: PARAESTHESIA
  3. LYRICA [Suspect]
     Indication: HYPOAESTHESIA
  4. LOTREL [Concomitant]
     Indication: HYPERTENSION
     Dosage: 5/20 MG, DAILY

REACTIONS (2)
  - Renal disorder [Unknown]
  - Back disorder [Unknown]
